FAERS Safety Report 12507728 (Version 1)
Quarter: 2016Q2

REPORT INFORMATION
  Report Type: Spontaneous
  Country: US (occurrence: None)
  Receive Date: 20160628
  Receipt Date: 20160628
  Transmission Date: 20160815
  Serious: Yes (Hospitalization, Other)
  Sender: FDA-Public Use
  Company Number: None

PATIENT
  Age: 79 Year
  Sex: Male
  Weight: 95.26 kg

DRUGS (3)
  1. LOSARTAN. [Concomitant]
     Active Substance: LOSARTAN
  2. DELSYM [Suspect]
     Active Substance: DEXTROMETHORPHAN
     Indication: COUGH
     Route: 048
     Dates: start: 20160201, end: 20160201
  3. ALFUZOSIN [Concomitant]
     Active Substance: ALFUZOSIN

REACTIONS (5)
  - Immune system disorder [None]
  - Post-traumatic stress disorder [None]
  - Movement disorder [None]
  - Platelet count decreased [None]
  - Disease recurrence [None]

NARRATIVE: CASE EVENT DATE: 20160201
